FAERS Safety Report 12620983 (Version 1)
Quarter: 2016Q3

REPORT INFORMATION
  Report Type: Spontaneous
  Country: US (occurrence: None)
  Receive Date: 20160803
  Receipt Date: 20160803
  Transmission Date: 20161109
  Serious: Yes (Other)
  Sender: FDA-Public Use
  Company Number: None

PATIENT
  Age: 83 Year
  Sex: Male
  Weight: 77.11 kg

DRUGS (9)
  1. SPIRONOLACTONE. [Concomitant]
     Active Substance: SPIRONOLACTONE
  2. TRICOR [Suspect]
     Active Substance: FENOFIBRATE
     Indication: BLOOD TRIGLYCERIDES INCREASED
     Route: 048
     Dates: start: 20160727, end: 20160731
  3. COREG [Concomitant]
     Active Substance: CARVEDILOL
  4. TIKOSYN [Concomitant]
     Active Substance: DOFETILIDE
  5. ZOCOR [Concomitant]
     Active Substance: SIMVASTATIN
  6. DIGOXIN. [Concomitant]
     Active Substance: DIGOXIN
  7. WARFARIN [Concomitant]
     Active Substance: WARFARIN
  8. TYLENOL [Concomitant]
     Active Substance: ACETAMINOPHEN
  9. OMEPRAZOLE. [Concomitant]
     Active Substance: OMEPRAZOLE

REACTIONS (2)
  - Atrial fibrillation [None]
  - Drug interaction [None]

NARRATIVE: CASE EVENT DATE: 20160801
